FAERS Safety Report 8208077 (Version 2)
Quarter: 2012Q4

REPORT INFORMATION
  Report Type: Report from Study
  Country: US (occurrence: US)
  Receive Date: 20111028
  Receipt Date: 20121211
  Transmission Date: 20130627
  Serious: Yes (Other)
  Sender: FDA-Public Use
  Company Number: US-ABBOTT-11P-163-0867293-00

PATIENT
  Sex: Female
  Weight: 72.64 kg

DRUGS (8)
  1. HUMIRA 40 MG/ 0.8 ML PRE-FILLED SYRINGE [Suspect]
     Indication: JUVENILE ARTHRITIS
     Route: 050
     Dates: start: 20100915, end: 20101028
  2. HUMIRA 40 MG/ 0.8 ML PRE-FILLED SYRINGE [Suspect]
     Indication: UVEITIS
  3. PRENATAL VITAMINS [Concomitant]
     Indication: PRODUCT USED FOR UNKNOWN INDICATION
     Route: 048
     Dates: start: 20101028, end: 20110418
  4. PREDNISONE [Concomitant]
     Indication: JUVENILE ARTHRITIS
     Dosage: 10-15 mg per day
     Route: 048
     Dates: start: 20101101, end: 20110418
  5. PREDNISONE [Concomitant]
     Indication: UVEITIS
  6. MAGNESIUM [Concomitant]
     Indication: ABNORMAL LABOUR
     Route: 050
     Dates: start: 20110415, end: 20110415
  7. FLU VACCINE [Concomitant]
     Indication: ANTIVIRAL PROPHYLAXIS
     Route: 050
     Dates: start: 20101115, end: 20101215
  8. TYLENOL [Concomitant]
     Indication: HEADACHE
     Route: 048
     Dates: start: 20101123, end: 20101123

REACTIONS (3)
  - Premature labour [Unknown]
  - Premature delivery [Unknown]
  - Polyhydramnios [Unknown]
